FAERS Safety Report 7716747-5 (Version None)
Quarter: 2011Q3

REPORT INFORMATION
  Report Type: 
  Country: None (occurrence: None)
  Receive Date: 20110829
  Receipt Date: 20110823
  Transmission Date: 20111222
  Serious: Yes (Other)
  Sender: FDA-Public Use
  Company Number: US-JNJFOC-20110810517

PATIENT
  Sex: Female
  Weight: 78.93 kg

DRUGS (1)
  1. REMICADE [Suspect]
     Indication: RHEUMATOID ARTHRITIS
     Route: 042
     Dates: start: 20110714

REACTIONS (2)
  - ASTHMA [None]
  - INFUSION RELATED REACTION [None]
